FAERS Safety Report 16479286 (Version 2)
Quarter: 2019Q4

REPORT INFORMATION
  Report Type: Spontaneous
  Country: US (occurrence: US)
  Receive Date: 20190626
  Receipt Date: 20191220
  Transmission Date: 20200122
  Serious: Yes (Death, Other)
  Sender: FDA-Public Use
  Company Number: US-ASTRAZENECA-2019SE90999

PATIENT
  Age: 57 Year
  Sex: Female
  Weight: 117.9 kg

DRUGS (47)
  1. PLENDIL [Concomitant]
     Active Substance: FELODIPINE
     Indication: HYPERTENSION
     Route: 065
     Dates: start: 2006, end: 2010
  2. TYLENOL [Concomitant]
     Active Substance: ACETAMINOPHEN
  3. FINASTERIDE. [Concomitant]
     Active Substance: FINASTERIDE
  4. BICITRA [Concomitant]
     Active Substance: CITRIC ACID, 1-STEARYL ESTER\SODIUM CITRATE
     Indication: OEDEMA
     Route: 065
  5. SPIRONOLACTONE. [Concomitant]
     Active Substance: SPIRONOLACTONE
  6. SERZONE [Concomitant]
     Active Substance: NEFAZODONE HYDROCHLORIDE
  7. FLEXERIL [Concomitant]
     Active Substance: CYCLOBENZAPRINE HYDROCHLORIDE
     Route: 048
  8. HYDRALAZINE [Concomitant]
     Active Substance: HYDRALAZINE HYDROCHLORIDE
  9. AZITHROMYCIN ANHYDROUS. [Concomitant]
     Active Substance: AZITHROMYCIN ANHYDROUS
  10. ZETIA [Concomitant]
     Active Substance: EZETIMIBE
     Route: 048
  11. LEXAPRO [Concomitant]
     Active Substance: ESCITALOPRAM OXALATE
  12. NOVOLIN [Concomitant]
     Active Substance: INSULIN HUMAN
     Indication: DIABETES MELLITUS
     Route: 065
     Dates: start: 2002, end: 2010
  13. BYSTOLIC [Concomitant]
     Active Substance: NEBIVOLOL HYDROCHLORIDE
  14. XALATAN [Concomitant]
     Active Substance: LATANOPROST
  15. REQUIP [Concomitant]
     Active Substance: ROPINIROLE HYDROCHLORIDE
     Route: 048
  16. TRUSOPT [Concomitant]
     Active Substance: DORZOLAMIDE HYDROCHLORIDE
  17. LANOXIN [Concomitant]
     Active Substance: DIGOXIN
  18. METOPROLOL TARTRATE. [Concomitant]
     Active Substance: METOPROLOL TARTRATE
  19. ZANTAC [Concomitant]
     Active Substance: RANITIDINE HYDROCHLORIDE
  20. PRILOSEC [Suspect]
     Active Substance: OMEPRAZOLE MAGNESIUM
     Indication: GASTROOESOPHAGEAL REFLUX DISEASE
     Route: 048
     Dates: start: 199310, end: 201705
  21. PREVACID [Suspect]
     Active Substance: LANSOPRAZOLE
     Indication: GASTROOESOPHAGEAL REFLUX DISEASE
     Route: 065
     Dates: start: 199310, end: 201705
  22. PROTONIX [Suspect]
     Active Substance: PANTOPRAZOLE SODIUM
     Indication: GASTROOESOPHAGEAL REFLUX DISEASE
     Route: 065
     Dates: start: 2005, end: 2006
  23. RENVELA [Concomitant]
     Active Substance: SEVELAMER CARBONATE
  24. GLYNASE [Concomitant]
     Active Substance: GLYBURIDE
  25. LESCOL [Concomitant]
     Active Substance: FLUVASTATIN SODIUM
  26. CARAFATE [Concomitant]
     Active Substance: SUCRALFATE
     Route: 048
  27. GABAPENTIN. [Concomitant]
     Active Substance: GABAPENTIN
     Route: 048
  28. ZOFRAN [Concomitant]
     Active Substance: ONDANSETRON HYDROCHLORIDE
     Route: 048
  29. CAPTOPRIL. [Concomitant]
     Active Substance: CAPTOPRIL
  30. PROTONIX [Suspect]
     Active Substance: PANTOPRAZOLE SODIUM
     Indication: GASTROOESOPHAGEAL REFLUX DISEASE
     Route: 065
     Dates: start: 199310, end: 201705
  31. PROTONIX [Suspect]
     Active Substance: PANTOPRAZOLE SODIUM
     Indication: GASTROOESOPHAGEAL REFLUX DISEASE
     Route: 065
  32. CLONIDINE. [Concomitant]
     Active Substance: CLONIDINE
  33. BUMETANIDE. [Concomitant]
     Active Substance: BUMETANIDE
  34. CELEXA [Concomitant]
     Active Substance: CITALOPRAM HYDROBROMIDE
  35. HCTZ [Concomitant]
     Active Substance: HYDROCHLOROTHIAZIDE
  36. PREMARIN [Concomitant]
     Active Substance: ESTROGENS, CONJUGATED
  37. PRILOSEC [Suspect]
     Active Substance: OMEPRAZOLE MAGNESIUM
     Indication: GASTROOESOPHAGEAL REFLUX DISEASE
     Route: 048
     Dates: start: 1993, end: 1999
  38. PREVACID [Suspect]
     Active Substance: LANSOPRAZOLE
     Indication: GASTROOESOPHAGEAL REFLUX DISEASE
     Route: 065
     Dates: start: 2003, end: 2005
  39. FUROSEMIDE. [Concomitant]
     Active Substance: FUROSEMIDE
     Indication: OEDEMA
     Route: 065
  40. PATANOL [Concomitant]
     Active Substance: OLOPATADINE HYDROCHLORIDE
  41. COUMADIN [Concomitant]
     Active Substance: WARFARIN SODIUM
  42. PHENERGAN [Concomitant]
     Active Substance: PROMETHAZINE HYDROCHLORIDE
     Route: 048
  43. FUROSEMIDE. [Concomitant]
     Active Substance: FUROSEMIDE
     Indication: OEDEMA
     Route: 065
     Dates: start: 2003, end: 2009
  44. AMITRIPTYLINE [Concomitant]
     Active Substance: AMITRIPTYLINE
  45. MELATONIN [Concomitant]
     Active Substance: MELATONIN
     Route: 048
  46. MOBIC [Concomitant]
     Active Substance: MELOXICAM
     Route: 048
  47. ZEMPLAR [Concomitant]
     Active Substance: PARICALCITOL

REACTIONS (9)
  - Depression [Unknown]
  - Chronic kidney disease [Unknown]
  - Nephrogenic anaemia [Unknown]
  - End stage renal disease [Recovered/Resolved]
  - Renal failure [Unknown]
  - Acute kidney injury [Unknown]
  - Chronic kidney disease-mineral and bone disorder [Unknown]
  - Pulmonary embolism [Fatal]
  - Acute respiratory failure [Fatal]

NARRATIVE: CASE EVENT DATE: 2005
